FAERS Safety Report 7349576-5 (Version None)
Quarter: 2011Q1

REPORT INFORMATION
  Report Type: 
  Country: None (occurrence: None)
  Receive Date: 20110309
  Receipt Date: 20110309
  Transmission Date: 20110831
  Serious: Yes (Other)
  Sender: FDA-Public Use
  Company Number: None

PATIENT
  Sex: Female
  Weight: 60.782 kg

DRUGS (1)
  1. ANASTROZOLE [Suspect]
     Indication: BREAST CANCER
     Dosage: 1 TAB DAILY
     Dates: start: 20100701

REACTIONS (3)
  - BONE PAIN [None]
  - ALOPECIA [None]
  - WEIGHT INCREASED [None]
